FAERS Safety Report 6119860-1 (Version None)
Quarter: 2009Q1

REPORT INFORMATION
  Report Type: 
  Country: None (occurrence: None)
  Receive Date: 20090316
  Receipt Date: 20090303
  Transmission Date: 20090719
  Serious: Yes (Other)
  Sender: FDA-Public Use
  Company Number: FR-ROCHE-612929

PATIENT
  Sex: Female
  Weight: 99 kg

DRUGS (3)
  1. XENICAL [Suspect]
     Route: 048
     Dates: start: 20070901
  2. XENICAL [Suspect]
     Route: 048
     Dates: start: 20071001, end: 20080201
  3. METFORMIN HCL [Concomitant]
     Dosage: DOSE:1000.FREQUENCY:QD.

REACTIONS (1)
  - EPILEPSY [None]
